FAERS Safety Report 21080758 (Version 1)
Quarter: 2022Q3

REPORT INFORMATION
  Report Type: Spontaneous
  Country: US (occurrence: US)
  Receive Date: 20220714
  Receipt Date: 20220714
  Transmission Date: 20221027
  Serious: No
  Sender: FDA-Public Use
  Company Number: US-RECKITT BENCKISER HEALTHCARE INT LIMITED-RB-92211-2021

PATIENT
  Age: 61 Year
  Sex: Male

DRUGS (1)
  1. MUCINEX DM MAXIMUM STRENGTH [Suspect]
     Active Substance: DEXTROMETHORPHAN HYDROBROMIDE\GUAIFENESIN
     Indication: Cough
     Dosage: UNK, QD(TOOK 1 TABLET FOR EVERY 12 HOURS)
     Route: 065

REACTIONS (2)
  - Therapeutic product ineffective for unapproved indication [Not Recovered/Not Resolved]
  - Therapeutic product effective for unapproved indication [Unknown]
